FAERS Safety Report 19260276 (Version 1)
Quarter: 2021Q2

REPORT INFORMATION
  Report Type: Spontaneous
  Country: PT (occurrence: PT)
  Receive Date: 20210514
  Receipt Date: 20210514
  Transmission Date: 20210717
  Serious: Yes (Hospitalization, Other)
  Sender: FDA-Public Use
  Company Number: PT-CANTON LABORATORIES, LLC-2110564

PATIENT
  Age: 56 Year
  Sex: Female

DRUGS (2)
  1. NAPROSYN [Suspect]
     Active Substance: NAPROXEN
     Indication: ARTHRALGIA
     Route: 048
     Dates: start: 20210408, end: 20210418
  2. NEXIUM [Concomitant]
     Active Substance: ESOMEPRAZOLE MAGNESIUM
     Route: 048

REACTIONS (6)
  - Visual impairment [Unknown]
  - Haemorrhage urinary tract [Unknown]
  - Anal haemorrhage [Unknown]
  - Haemorrhoids [Unknown]
  - Eye haemorrhage [Unknown]
  - Gastritis [Unknown]

NARRATIVE: CASE EVENT DATE: 20210411
